FAERS Safety Report 13756584 (Version 2)
Quarter: 2017Q3

REPORT INFORMATION
  Report Type: Spontaneous
  Country: US (occurrence: US)
  Receive Date: 20170714
  Receipt Date: 20170822
  Transmission Date: 20171127
  Serious: Yes (Other)
  Sender: FDA-Public Use
  Company Number: US-PFIZER INC-2017236905

PATIENT
  Age: 71 Year
  Sex: Male

DRUGS (2)
  1. METHOTREXATE. [Suspect]
     Active Substance: METHOTREXATE
     Dosage: 17.5 MG, WEEKLY
     Route: 048
  2. XELJANZ XR [Suspect]
     Active Substance: TOFACITINIB CITRATE
     Indication: RHEUMATOID ARTHRITIS
     Dosage: 11 MG, UNK
     Dates: end: 2017

REACTIONS (18)
  - Neuropathy peripheral [Unknown]
  - Paraesthesia [Unknown]
  - Red blood cell sedimentation rate increased [Unknown]
  - Joint range of motion decreased [Unknown]
  - Arthralgia [Unknown]
  - Synovitis [Unknown]
  - Arthropathy [Unknown]
  - Hyperkeratosis [Unknown]
  - Tenderness [Unknown]
  - Oedema peripheral [Unknown]
  - Mean cell haemoglobin increased [Unknown]
  - Hypertension [Unknown]
  - Pain in extremity [Not Recovered/Not Resolved]
  - Glycosylated haemoglobin increased [Unknown]
  - Skin lesion [Recovered/Resolved]
  - Hypoaesthesia [Unknown]
  - Phalen^s test positive [Unknown]
  - Blood glucose increased [Unknown]

NARRATIVE: CASE EVENT DATE: 20170531
